FAERS Safety Report 10222317 (Version 1)
Quarter: 2014Q2

REPORT INFORMATION
  Report Type: Spontaneous
  Country: US (occurrence: US)
  Receive Date: 20140606
  Receipt Date: 20140606
  Transmission Date: 20141212
  Serious: No
  Sender: FDA-Public Use
  Company Number: US-PFIZER INC-2014153010

PATIENT
  Age: 71 Year
  Sex: Male
  Weight: 94.33 kg

DRUGS (1)
  1. ZYVOX [Suspect]
     Dosage: UNK

REACTIONS (4)
  - Tongue discolouration [Not Recovered/Not Resolved]
  - Glossodynia [Not Recovered/Not Resolved]
  - Lip pain [Not Recovered/Not Resolved]
  - Gingival pain [Not Recovered/Not Resolved]
